FAERS Safety Report 8035845-2 (Version None)
Quarter: 2012Q1

REPORT INFORMATION
  Report Type: 
  Country: None (occurrence: None)
  Receive Date: 20120111
  Receipt Date: 20120111
  Transmission Date: 20120608
  Serious: Yes (Hospitalization)
  Sender: FDA-Public Use
  Company Number: None

PATIENT
  Age: 79 Year
  Sex: Female
  Weight: 43.091 kg

DRUGS (1)
  1. PIPERACILLIN AND TAZOBACTAM [Suspect]
     Indication: CHRONIC OBSTRUCTIVE PULMONARY DISEASE
     Dosage: 3.375 MG
     Route: 042
     Dates: start: 20111227, end: 20120105

REACTIONS (4)
  - SYNCOPE [None]
  - PYREXIA [None]
  - HYPERHIDROSIS [None]
  - NEUTROPENIA [None]
